FAERS Safety Report 4342293-5 (Version None)
Quarter: 2004Q2

REPORT INFORMATION
  Report Type: 
  Country: None (occurrence: None)
  Receive Date: 20040415
  Receipt Date: 20040407
  Transmission Date: 20050107
  Serious: Yes (Hospitalization)
  Sender: FDA-Public Use
  Company Number: 200403600

PATIENT
  Age: 40 Year
  Sex: Male

DRUGS (2)
  1. FLEXERIL [Suspect]
     Indication: BACK PAIN
     Dosage: PO
     Route: 048
     Dates: start: 20040402
  2. PERCOCET [Concomitant]

REACTIONS (6)
  - DYSPNOEA [None]
  - FALL [None]
  - HYPOTENSION [None]
  - MUSCLE CONTRACTIONS INVOLUNTARY [None]
  - MUSCLE SPASMS [None]
  - TUNNEL VISION [None]
